FAERS Safety Report 5484662-6 (Version None)
Quarter: 2007Q4

REPORT INFORMATION
  Report Type: 
  Country: None (occurrence: None)
  Receive Date: 20071010
  Receipt Date: 20071001
  Transmission Date: 20080405
  Serious: Yes (Other)
  Sender: FDA-Public Use
  Company Number: 2006SP002136

PATIENT
  Age: 51 Year
  Sex: Female
  Weight: 51.7101 kg

DRUGS (5)
  1. INTRON A [Suspect]
     Indication: HEPATITIS C
     Dosage: 50 MCG; SC
     Route: 058
     Dates: start: 19980101
  2. PEG-INTRON [Suspect]
     Dosage: SC
  3. ZYPREXA [Concomitant]
  4. NEURONTIN [Concomitant]
  5. IMITREX [Concomitant]

REACTIONS (7)
  - ALOPECIA [None]
  - ANAEMIA [None]
  - BIPOLAR DISORDER [None]
  - BLISTER [None]
  - EMOTIONAL DISORDER [None]
  - NAUSEA [None]
  - WEIGHT DECREASED [None]
